FAERS Safety Report 19212280 (Version 1)
Quarter: 2021Q2

REPORT INFORMATION
  Report Type: Spontaneous
  Country: US (occurrence: US)
  Receive Date: 20210504
  Receipt Date: 20210504
  Transmission Date: 20210717
  Serious: No
  Sender: FDA-Public Use
  Company Number: NVSC2021US100804

PATIENT

DRUGS (4)
  1. VOLTAREN [Suspect]
     Active Substance: DICLOFENAC SODIUM
     Indication: FIBROMYALGIA
  2. VOLTAREN [Suspect]
     Active Substance: DICLOFENAC SODIUM
     Indication: PAIN
     Dosage: UNK
     Route: 065
  3. VOLTAREN [Suspect]
     Active Substance: DICLOFENAC SODIUM
     Indication: SYSTEMIC LUPUS ERYTHEMATOSUS
  4. VOLTAREN [Suspect]
     Active Substance: DICLOFENAC SODIUM
     Indication: ARTHRITIS

REACTIONS (1)
  - Therapeutic response unexpected [Unknown]
